FAERS Safety Report 16656772 (Version 4)
Quarter: 2020Q3

REPORT INFORMATION
  Report Type: Spontaneous
  Country: US (occurrence: US)
  Receive Date: 20190801
  Receipt Date: 20200820
  Transmission Date: 20201102
  Serious: Yes (Other)
  Sender: FDA-Public Use
  Company Number: US-GILEAD-2019-0420484

PATIENT
  Age: 47 Year
  Sex: Male

DRUGS (4)
  1. GENVOYA [Concomitant]
     Active Substance: COBICISTAT\ELVITEGRAVIR\EMTRICITABINE\TENOFOVIR ALAFENAMIDE FUMARATE
     Indication: HIV INFECTION
     Route: 065
  2. VIREAD [Suspect]
     Active Substance: TENOFOVIR DISOPROXIL FUMARATE
     Indication: HIV INFECTION
     Dosage: UNK
     Route: 048
     Dates: start: 2003, end: 200404
  3. STRIBILD [Suspect]
     Active Substance: COBICISTAT\ELVITEGRAVIR\EMTRICITABINE\TENOFOVIR DISOPROXIL FUMARATE
     Indication: HIV INFECTION
     Dosage: UNK
     Route: 048
     Dates: start: 20160218, end: 20160916
  4. ATRIPLA [Suspect]
     Active Substance: EFAVIRENZ\EMTRICITABINE\TENOFOVIR DISOPROXIL FUMARATE
     Indication: HIV INFECTION
     Dosage: UNK
     Route: 048
     Dates: start: 200601, end: 201602

REACTIONS (10)
  - Bone density decreased [Unknown]
  - Anxiety [Unknown]
  - Spinal stenosis [Not Recovered/Not Resolved]
  - Tooth loss [Unknown]
  - Pain [Unknown]
  - Anhedonia [Unknown]
  - Emotional distress [Unknown]
  - Bone loss [Not Recovered/Not Resolved]
  - Osteonecrosis [Unknown]
  - Economic problem [Unknown]

NARRATIVE: CASE EVENT DATE: 201807
